FAERS Safety Report 7980376-9 (Version None)
Quarter: 2011Q4

REPORT INFORMATION
  Report Type: 
  Country: None (occurrence: None)
  Receive Date: 20111214
  Receipt Date: 20111205
  Transmission Date: 20120403
  Serious: Yes (Other)
  Sender: FDA-Public Use
  Company Number: US-JNJFOC-20111202128

PATIENT
  Age: 15 Year
  Sex: Female

DRUGS (2)
  1. MERCAPTOPURINE [Concomitant]
  2. REMICADE [Suspect]
     Indication: CROHN'S DISEASE
     Dosage: 6 MONTHS OF TREATMENT PRIOR TO ONSET OF AE.
     Route: 042

REACTIONS (1)
  - THYROID CANCER [None]
